FAERS Safety Report 7535237-6 (Version None)
Quarter: 2011Q2

REPORT INFORMATION
  Report Type: 
  Country: None (occurrence: None)
  Receive Date: 20110609
  Receipt Date: 20080103
  Transmission Date: 20111010
  Serious: Yes (Other)
  Sender: FDA-Public Use
  Company Number: PHEH2007US15240

PATIENT
  Sex: Female

DRUGS (4)
  1. NITROGLYCERIN [Suspect]
     Indication: HYPERTENSION
  2. DIOVAN HCT [Suspect]
     Indication: HYPERTENSION
     Dates: start: 20050101
  3. TOPROL-XL [Suspect]
  4. NORVASC [Suspect]
     Indication: HYPERTENSION

REACTIONS (1)
  - RENAL DISORDER [None]
